FAERS Safety Report 8789157 (Version 1)
Quarter: 2012Q4

REPORT INFORMATION
  Report Type: Spontaneous
  Country: US (occurrence: None)
  Receive Date: 20120907
  Receipt Date: 20120907
  Transmission Date: 20130627
  Serious: Yes (Hospitalization)
  Sender: FDA-Public Use
  Company Number: None

PATIENT
  Age: 85 Year
  Sex: Male
  Weight: 114.9 kg

DRUGS (2)
  1. PHENYTOIN [Suspect]
     Indication: SEIZURE
     Route: 048
     Dates: start: 20021222
  2. FUROSEMIDE [Suspect]
     Route: 048
     Dates: start: 20040317

REACTIONS (4)
  - Dizziness [None]
  - Fall [None]
  - Musculoskeletal pain [None]
  - Loss of consciousness [None]
